FAERS Safety Report 4319829-3 (Version None)
Quarter: 2004Q1

REPORT INFORMATION
  Report Type: 
  Country: None (occurrence: None)
  Receive Date: 20040319
  Receipt Date: 20040303
  Transmission Date: 20041129
  Serious: Yes (Other)
  Sender: FDA-Public Use
  Company Number: PHBS2004CA03017

PATIENT
  Age: 35 Year
  Sex: Male

DRUGS (6)
  1. TEGRETOL [Suspect]
     Indication: PAIN
     Dosage: 100 MG/HS
     Route: 048
     Dates: start: 20040223
  2. TEGRETOL [Suspect]
     Dosage: 100 MG, BID
     Route: 048
     Dates: end: 20040302
  3. OXYCONTIN [Concomitant]
     Dosage: 60 MG, BID
     Route: 065
  4. OXYCOCET [Concomitant]
     Dosage: PRN
     Route: 065
  5. LOSEC [Concomitant]
     Dosage: 20 MG, BID
     Route: 065
  6. LORAZEPAM [Concomitant]
     Dosage: 1 MG, BID/PRN
     Route: 065

REACTIONS (2)
  - BALANITIS [None]
  - HALLUCINATION, VISUAL [None]
